FAERS Safety Report 9688362 (Version 3)
Quarter: 2013Q4

REPORT INFORMATION
  Report Type: Spontaneous
  Country: FI (occurrence: FI)
  Receive Date: 20131114
  Receipt Date: 20131204
  Transmission Date: 20140711
  Serious: Yes (Other)
  Sender: FDA-Public Use
  Company Number: FI-009507513-1311FIN000963

PATIENT
  Age: 34 Year
  Sex: Female
  Weight: 62 kg

DRUGS (2)
  1. NUVARING [Suspect]
     Dosage: UNK
     Route: 067
     Dates: start: 2005
  2. PANADOL [Concomitant]
     Dosage: EVERY NOW AND THEN WHEN NEEDED

REACTIONS (3)
  - Abortion induced [Unknown]
  - Unintended pregnancy [Recovered/Resolved]
  - Product quality issue [Unknown]
